FAERS Safety Report 8305226-2 (Version None)
Quarter: 2012Q2

REPORT INFORMATION
  Report Type: 
  Country: None (occurrence: None)
  Receive Date: 20120423
  Receipt Date: 20120410
  Transmission Date: 20120825
  Serious: No
  Sender: FDA-Public Use
  Company Number: US-JNJFOC-20120405199

PATIENT
  Sex: Female
  Weight: 58.97 kg

DRUGS (5)
  1. FENTANYL-100 [Suspect]
     Indication: FIBROMYALGIA
     Route: 062
     Dates: start: 20120201
  2. FENTANYL-100 [Suspect]
     Route: 062
     Dates: start: 20120201
  3. FENTANYL-100 [Suspect]
     Indication: INTERVERTEBRAL DISC DEGENERATION
     Route: 062
     Dates: start: 20120201
  4. UNSPECIFIED GENERIC DRUG [Concomitant]
     Route: 065
  5. FENTANYL-100 [Suspect]
     Route: 062
     Dates: start: 20120201

REACTIONS (1)
  - WRONG TECHNIQUE IN DRUG USAGE PROCESS [None]
